FAERS Safety Report 25176944 (Version 1)
Quarter: 2025Q2

REPORT INFORMATION
  Report Type: Spontaneous
  Country: CA (occurrence: CA)
  Receive Date: 20250409
  Receipt Date: 20250409
  Transmission Date: 20250717
  Serious: Yes (Death)
  Sender: ROCHE
  Company Number: CA-ROCHE-10000252938

PATIENT

DRUGS (1)
  1. ENTRECTINIB [Suspect]
     Active Substance: ENTRECTINIB
     Indication: Non-small cell lung cancer metastatic
     Route: 065

REACTIONS (2)
  - Lung neoplasm malignant [Fatal]
  - Pain [Unknown]
